FAERS Safety Report 6302434-7 (Version None)
Quarter: 2009Q3

REPORT INFORMATION
  Report Type: 
  Country: None (occurrence: None)
  Receive Date: 20090810
  Receipt Date: 20090731
  Transmission Date: 20100115
  Serious: No
  Sender: FDA-Public Use
  Company Number: US-JNJFOC-20090800696

PATIENT
  Sex: Female
  Weight: 85.28 kg

DRUGS (3)
  1. DURAGESIC-100 [Suspect]
     Indication: BONE PAIN
     Route: 062
  2. TEGRETOL [Concomitant]
     Indication: CONVULSION
     Route: 048
  3. KLONOPIN [Concomitant]
     Indication: CONVULSION
     Route: 048

REACTIONS (2)
  - DEVICE ADHESION ISSUE [None]
  - WRONG TECHNIQUE IN DRUG USAGE PROCESS [None]
